FAERS Safety Report 4647734-1 (Version None)
Quarter: 2005Q2

REPORT INFORMATION
  Report Type: 
  Country: None (occurrence: None)
  Receive Date: 20050428
  Receipt Date: 20050407
  Transmission Date: 20051028
  Serious: Yes (Other)
  Sender: FDA-Public Use
  Company Number: JP-ROCHE-401812

PATIENT
  Age: 19 Year
  Sex: Male

DRUGS (5)
  1. TAMIFLU [Suspect]
     Route: 048
     Dates: start: 20050219, end: 20050219
  2. TAMIFLU [Suspect]
     Route: 048
     Dates: start: 20050220, end: 20050223
  3. TAMIFLU [Suspect]
     Route: 048
     Dates: start: 20050224, end: 20050224
  4. CALONAL [Concomitant]
     Route: 048
     Dates: start: 20050219, end: 20050220
  5. LAC B [Concomitant]
     Route: 048
     Dates: start: 20050221, end: 20050224

REACTIONS (3)
  - HAEMODIALYSIS [None]
  - LYMPHOCYTE STIMULATION TEST POSITIVE [None]
  - RENAL TUBULAR NECROSIS [None]
